FAERS Safety Report 9464621 (Version 1)
Quarter: 2013Q3

REPORT INFORMATION
  Report Type: Spontaneous
  Country: US (occurrence: US)
  Receive Date: 20130819
  Receipt Date: 20130819
  Transmission Date: 20140515
  Serious: No
  Sender: FDA-Public Use
  Company Number: US-PFIZER INC-2013238115

PATIENT
  Age: 2 Month
  Sex: Female

DRUGS (1)
  1. INFANT ADVIL CONCENTRATED DROPS [Suspect]
     Dosage: 0.05 ML, UNK
     Route: 048
     Dates: start: 2013

REACTIONS (2)
  - Overdose [Unknown]
  - Hypersomnia [Unknown]
